FAERS Safety Report 4328719-1 (Version None)
Quarter: 2004Q1

REPORT INFORMATION
  Report Type: 
  Country: None (occurrence: None)
  Receive Date: 20040329
  Receipt Date: 20040105
  Transmission Date: 20041129
  Serious: No
  Sender: FDA-Public Use
  Company Number: 04P-163-0246323-00

PATIENT
  Age: 63 Year
  Sex: Female

DRUGS (9)
  1. HUMIRA [Suspect]
     Indication: RHEUMATOID ARTHRITIS
     Dosage: 40 MG, 1IN 2 WK, SUBCUTANEOUS
     Route: 058
     Dates: start: 20031219
  2. ISONIAZID [Concomitant]
  3. PYRIDOXINE HYDROCHLORIDE [Concomitant]
  4. METHOTREXATE SODIUM [Concomitant]
  5. BUCINDOLOL HYDROCHLORIDE [Concomitant]
  6. FOLIC ACID [Concomitant]
  7. ALENDRONATE SODIUM [Concomitant]
  8. PREDNISONE [Concomitant]
  9. BLOOD PRESSURE MEDICATIONS [Concomitant]

REACTIONS (2)
  - PAIN IN EXTREMITY [None]
  - PARAESTHESIA [None]
